FAERS Safety Report 4613666-8 (Version None)
Quarter: 2005Q1

REPORT INFORMATION
  Report Type: 
  Country: None (occurrence: None)
  Receive Date: 20050318
  Receipt Date: 20050318
  Transmission Date: 20050727
  Serious: No
  Sender: FDA-Public Use
  Company Number: None

PATIENT
  Sex: Female

DRUGS (1)
  1. MIRALAX [Suspect]
     Dosage: AS DIRECTED

REACTIONS (1)
  - NO ADVERSE DRUG EFFECT [None]
